FAERS Safety Report 9158512 (Version 4)
Quarter: 2013Q3

REPORT INFORMATION
  Report Type: Spontaneous
  Country: US (occurrence: US)
  Receive Date: 20130312
  Receipt Date: 20130826
  Transmission Date: 20140515
  Serious: Yes (Death, Hospitalization)
  Sender: FDA-Public Use
  Company Number: US-B.I. PHARMACEUTICALS,INC./RIDGEFIELD-2013-BI-06308BP

PATIENT
  Age: 75 Year
  Sex: Male
  Weight: 83.91 kg

DRUGS (5)
  1. PRADAXA [Suspect]
     Indication: ANTICOAGULANT THERAPY
     Dosage: 300 MG
     Dates: start: 20101224, end: 20110306
  2. SOTALOL [Concomitant]
  3. LEVAQUIN [Concomitant]
  4. HYDROMET SYRUP [Concomitant]
  5. ASPIRIN [Concomitant]
     Indication: CEREBROVASCULAR ACCIDENT PROPHYLAXIS

REACTIONS (2)
  - Cerebral haemorrhage [Fatal]
  - Cerebral haemorrhage [Unknown]
